FAERS Safety Report 9356740 (Version 1)
Quarter: 2013Q2

REPORT INFORMATION
  Report Type: Spontaneous
  Country: DZ (occurrence: DZ)
  Receive Date: 20130619
  Receipt Date: 20130619
  Transmission Date: 20140414
  Serious: Yes (Disabling)
  Sender: FDA-Public Use
  Company Number: PHHY2013DZ062411

PATIENT
  Age: 53 Year
  Sex: Female

DRUGS (3)
  1. FEMARA [Suspect]
     Indication: BREAST CANCER
     Dosage: 2.5 MG, ONCE/SINGLE
     Route: 048
     Dates: start: 20130117, end: 20130522
  2. DILTIAZEM [Concomitant]
     Indication: HYPERTENSION
     Dosage: 300 MG, LP
     Route: 048
     Dates: start: 2003
  3. ZOLEDRONIC ACID [Concomitant]
     Dosage: UNK

REACTIONS (1)
  - Uveitis [Recovering/Resolving]
